FAERS Safety Report 7065121-6 (Version None)
Quarter: 2010Q4

REPORT INFORMATION
  Report Type: 
  Country: None (occurrence: None)
  Receive Date: 20101019
  Receipt Date: 20101006
  Transmission Date: 20110411
  Serious: Yes (Other)
  Sender: FDA-Public Use
  Company Number: 1000016049

PATIENT
  Age: 26 Year
  Sex: Male

DRUGS (4)
  1. ESCITALOPRAM [Suspect]
     Indication: DEPRESSION
     Dosage: 10 MG (10 MG, 1 IN 1 D), ORAL
     Route: 048
     Dates: start: 20100607
  2. BUPRENORPHINE (BUPRENORPHINE) (BUPRENORPHINE) [Concomitant]
  3. ZOLPIDEM (ZOLPIDEM) (ZOLPIDEM) [Concomitant]
  4. ALPRAZOLAM [Concomitant]

REACTIONS (2)
  - ABDOMINAL PAIN [None]
  - ANXIETY [None]
